FAERS Safety Report 17488857 (Version 1)
Quarter: 2020Q1

REPORT INFORMATION
  Report Type: Report from Study
  Country: US (occurrence: US)
  Receive Date: 20200303
  Receipt Date: 20200303
  Transmission Date: 20200409
  Serious: Yes (Hospitalization)
  Sender: FDA-Public Use
  Company Number: US-PFIZER INC-2020090323

PATIENT
  Age: 54 Year
  Sex: Female

DRUGS (2)
  1. CHANTIX [Suspect]
     Active Substance: VARENICLINE TARTRATE
     Dosage: UNK
     Route: 048
  2. HUMIRA [Suspect]
     Active Substance: ADALIMUMAB
     Dosage: UNK (40MG/0.4ML), (1 IN 2 WEEK)
     Route: 058

REACTIONS (2)
  - Infection [Unknown]
  - Drug hypersensitivity [Unknown]

NARRATIVE: CASE EVENT DATE: 2020
